FAERS Safety Report 25017424 (Version 1)
Quarter: 2025Q1

REPORT INFORMATION
  Report Type: Spontaneous
  Country: US (occurrence: None)
  Receive Date: 20250226
  Receipt Date: 20250226
  Transmission Date: 20250409
  Serious: Yes (Hospitalization)
  Sender: FDA-CTU
  Company Number: None

PATIENT
  Sex: Female

DRUGS (3)
  1. ICATIBANT ACETATE [Suspect]
     Active Substance: ICATIBANT ACETATE
     Indication: Complement factor abnormal
     Route: 058
     Dates: start: 202303
  2. DUPIXENTPEN (2-PKI [Concomitant]
  3. TAKHZYRO PFS [Concomitant]

REACTIONS (5)
  - Rash [None]
  - Abdominal pain [None]
  - Vomiting [None]
  - Diarrhoea [None]
  - Biliary dilatation [None]
